FAERS Safety Report 6709278-2 (Version None)
Quarter: 2010Q2

REPORT INFORMATION
  Report Type: 
  Country: None (occurrence: None)
  Receive Date: 20100504
  Receipt Date: 20100428
  Transmission Date: 20101027
  Serious: Yes (Hospitalization)
  Sender: FDA-Public Use
  Company Number: FR-RB-005386-10

PATIENT
  Age: 49 Year
  Sex: Male

DRUGS (4)
  1. SUBUTEX [Suspect]
     Indication: INTENTIONAL DRUG MISUSE
     Dosage: DOSING DETAILS UNKNOWN
     Route: 065
     Dates: start: 20091104
  2. ALCOHOL [Suspect]
     Indication: DRUG USE FOR UNKNOWN INDICATION
     Dosage: UNKNOWN DOSING DETAILS
     Route: 065
  3. COCAINE [Suspect]
     Indication: DRUG USE FOR UNKNOWN INDICATION
     Dosage: UNKNOWN DOSING DETAILS
     Route: 065
  4. CANNABIS [Suspect]
     Indication: DRUG USE FOR UNKNOWN INDICATION
     Dosage: UNKNOWN DOSING DETAILS
     Route: 065

REACTIONS (5)
  - AGITATION [None]
  - OFF LABEL USE [None]
  - POISONING DELIBERATE [None]
  - SUBSTANCE ABUSE [None]
  - SUICIDAL IDEATION [None]
